FAERS Safety Report 12210410 (Version 2)
Quarter: 2016Q2

REPORT INFORMATION
  Report Type: Spontaneous
  Country: US (occurrence: US)
  Receive Date: 20160325
  Receipt Date: 20160401
  Transmission Date: 20160815
  Serious: Yes (Death, Hospitalization)
  Sender: FDA-Public Use
  Company Number: US-AUROBINDO-AUR-APL-2016-03805

PATIENT
  Age: 42 Year
  Sex: Female

DRUGS (1)
  1. HYDROCODONE BITARTRATE AND ACETAMINOPHEN [Suspect]
     Active Substance: ACETAMINOPHEN\HYDROCODONE BITARTRATE
     Indication: PAIN
     Route: 065

REACTIONS (10)
  - Hypotension [Unknown]
  - Mental status changes [Unknown]
  - Intracranial hypotension [Unknown]
  - Fatigue [Unknown]
  - Death [Fatal]
  - Acute hepatic failure [Unknown]
  - Overdose [Unknown]
  - Brain oedema [Unknown]
  - Toxicity to various agents [Unknown]
  - Ocular icterus [Unknown]
